FAERS Safety Report 10376702 (Version 1)
Quarter: 2014Q3

REPORT INFORMATION
  Report Type: Spontaneous
  Country: US (occurrence: None)
  Receive Date: 20140807
  Receipt Date: 20140807
  Transmission Date: 20150326
  Serious: Yes (Hospitalization, Other)
  Sender: FDA-Public Use
  Company Number: 2014-001800

PATIENT
  Age: 77 Year
  Sex: Female
  Weight: 90.7 kg

DRUGS (21)
  1. ATENOLOL. [Concomitant]
     Active Substance: ATENOLOL
  2. DIOVAN [Concomitant]
     Active Substance: VALSARTAN
  3. BONIVA [Suspect]
     Active Substance: IBANDRONATE SODIUM
     Indication: OSTEOPOROSIS PROPHYLAXIS
     Route: 048
     Dates: start: 200609, end: 2012
  4. NEXIUM [Concomitant]
     Active Substance: ESOMEPRAZOLE MAGNESIUM
  5. ACTONEL [Suspect]
     Active Substance: RISEDRONATE SODIUM
     Indication: OSTEOPOROSIS
     Route: 048
     Dates: start: 200204
  6. PREDNISONE. [Concomitant]
     Active Substance: PREDNISONE
  7. GLIPIZIDE. [Concomitant]
     Active Substance: GLIPIZIDE
  8. ACTONEL [Suspect]
     Active Substance: RISEDRONATE SODIUM
     Indication: OSTEOPOROSIS
     Route: 048
     Dates: end: 200609
  9. LOSARTAN [Concomitant]
     Active Substance: LOSARTAN
  10. ACTONEL [Suspect]
     Active Substance: RISEDRONATE SODIUM
     Indication: OSTEOPOROSIS PROPHYLAXIS
     Route: 048
     Dates: start: 200204
  11. ACTONEL [Suspect]
     Active Substance: RISEDRONATE SODIUM
     Indication: OSTEOPOROSIS PROPHYLAXIS
     Route: 048
     Dates: end: 200609
  12. BONIVA [Suspect]
     Active Substance: IBANDRONATE SODIUM
     Indication: OSTEOPOROSIS
     Route: 048
     Dates: start: 200609, end: 2012
  13. LIPITOR [Concomitant]
     Active Substance: ATORVASTATIN CALCIUM
  14. ALBUTEROL. [Concomitant]
     Active Substance: ALBUTEROL
  15. RHINOCORT [Concomitant]
     Active Substance: BUDESONIDE
  16. OMEPRAZOLE. [Concomitant]
     Active Substance: OMEPRAZOLE
  17. METFORMIN [Concomitant]
     Active Substance: METFORMIN HYDROCHLORIDE
  18. AVANDIA [Concomitant]
     Active Substance: ROSIGLITAZONE MALEATE
  19. CARDIZEM [Concomitant]
     Active Substance: DILTIAZEM HYDROCHLORIDE
  20. ZYRTEC [Concomitant]
     Active Substance: CETIRIZINE HYDROCHLORIDE
  21. ZOLOFT [Concomitant]
     Active Substance: SERTRALINE HYDROCHLORIDE

REACTIONS (8)
  - Stress fracture [None]
  - Fracture displacement [None]
  - Bone disorder [None]
  - Pain [None]
  - Pathological fracture [None]
  - Femur fracture [None]
  - Low turnover osteopathy [None]
  - Arthralgia [None]

NARRATIVE: CASE EVENT DATE: 20120706
